FAERS Safety Report 10588988 (Version 1)
Quarter: 2014Q4

REPORT INFORMATION
  Report Type: Report from Study
  Country: GB (occurrence: GB)
  Receive Date: 20141117
  Receipt Date: 20141117
  Transmission Date: 20150529
  Serious: Yes (Hospitalization)
  Sender: FDA-Public Use
  Company Number: GB-AMGEN-GBRNI2014088117

PATIENT
  Age: 13 Year
  Sex: Female
  Weight: 18 kg

DRUGS (2)
  1. ETANERCEPT [Suspect]
     Active Substance: ETANERCEPT
     Indication: JUVENILE IDIOPATHIC ARTHRITIS
     Dosage: 7.5 MG, 2 TIMES/WK
     Route: 065
     Dates: start: 20080915, end: 20090414
  2. ETANERCEPT [Suspect]
     Active Substance: ETANERCEPT
     Dosage: 10 MG, 2 TIMES/WK
     Route: 065
     Dates: start: 20090414

REACTIONS (1)
  - Rash [Unknown]

NARRATIVE: CASE EVENT DATE: 200905
